FAERS Safety Report 24742433 (Version 1)
Quarter: 2024Q4

REPORT INFORMATION
  Report Type: Spontaneous
  Country: US (occurrence: None)
  Receive Date: 20241214
  Receipt Date: 20241214
  Transmission Date: 20250115
  Serious: Yes (Hospitalization, Disabling)
  Sender: Public
  Company Number: None

PATIENT
  Age: 15 Year
  Sex: Female
  Weight: 60.3 kg

DRUGS (5)
  1. FLUCONAZOLE [Suspect]
     Active Substance: FLUCONAZOLE
     Indication: Urinary tract infection fungal
     Dosage: 10 TABLETS TWICE A DAY ORAL
     Route: 048
     Dates: start: 20240621, end: 20240626
  2. AMPHOTERICIN B [Suspect]
     Active Substance: AMPHOTERICIN B
     Indication: Urinary tract infection fungal
     Dosage: 3 41.75ML, IV, DAILY ?FREQUENCY : DAILY;?
     Dates: start: 20240616, end: 20240619
  3. CEPHALEXIN [Suspect]
     Active Substance: CEPHALEXIN
  4. MACROBID [Suspect]
     Active Substance: NITROFURANTOIN\NITROFURANTOIN MONOHYDRATE
  5. HYDROCORTISONE [Concomitant]
     Active Substance: HYDROCORTISONE

REACTIONS (18)
  - Nausea [None]
  - Abdominal pain [None]
  - Drug ineffective [None]
  - Eye swelling [None]
  - Headache [None]
  - Paraesthesia [None]
  - Diplopia [None]
  - Trigeminal neuralgia [None]
  - Heterophoria [None]
  - Colour blindness [None]
  - Impaired driving ability [None]
  - Diplopia [None]
  - Dyskinesia [None]
  - Abdominal pain lower [None]
  - Toxicity to various agents [None]
  - Back pain [None]
  - Hypoaesthesia [None]
  - Paraesthesia oral [None]

NARRATIVE: CASE EVENT DATE: 20240624
